FAERS Safety Report 12187111 (Version 1)
Quarter: 2016Q1

REPORT INFORMATION
  Report Type: Spontaneous
  Country: US (occurrence: US)
  Receive Date: 20160317
  Receipt Date: 20160317
  Transmission Date: 20160526
  Serious: No
  Sender: FDA-Public Use
  Company Number: US-PFIZER INC-2016109018

PATIENT
  Age: 53 Year
  Sex: Female

DRUGS (1)
  1. XELJANZ [Suspect]
     Active Substance: TOFACITINIB CITRATE
     Indication: RHEUMATOID ARTHRITIS
     Dosage: 5 MG, 2X/DAY
     Route: 048
     Dates: start: 20151231

REACTIONS (7)
  - Pruritus [Unknown]
  - Eczema [Unknown]
  - Dermatitis [Unknown]
  - Dysuria [Unknown]
  - Drug ineffective [Unknown]
  - Fungal infection [Unknown]
  - Seborrhoeic dermatitis [Unknown]
